FAERS Safety Report 6346589-7 (Version None)
Quarter: 2009Q3

REPORT INFORMATION
  Report Type: 
  Country: None (occurrence: None)
  Receive Date: 20090827
  Receipt Date: 20090822
  Transmission Date: 20100115
  Serious: Yes (Other)
  Sender: FDA-Public Use
  Company Number: CHPA2009US17507

PATIENT
  Sex: Female

DRUGS (1)
  1. FERROUS SULFATE TAB [Suspect]
     Indication: MINERAL SUPPLEMENTATION
     Dosage: ORAL
     Route: 048

REACTIONS (1)
  - GASTROINTESTINAL HAEMORRHAGE [None]
